FAERS Safety Report 6251318-1 (Version None)
Quarter: 2009Q2

REPORT INFORMATION
  Report Type: 
  Country: None (occurrence: None)
  Receive Date: 20090630
  Receipt Date: 20090619
  Transmission Date: 20091009
  Serious: Yes (Other)
  Sender: FDA-Public Use
  Company Number: A0596728A

PATIENT
  Age: 55 Year
  Sex: Male
  Weight: 100 kg

DRUGS (24)
  1. AVANDAMET [Suspect]
     Route: 048
     Dates: start: 20041201, end: 20060301
  2. AVANDIA [Suspect]
     Dosage: 4MG TWICE PER DAY
     Route: 048
     Dates: start: 20041115, end: 20060101
  3. ALTACE [Concomitant]
  4. CELEBREX [Concomitant]
  5. VITAMINS [Concomitant]
  6. ACTOS [Concomitant]
  7. HYDROCHLOROTHIAZIDE [Concomitant]
     Dates: start: 20041115
  8. METFORMIN HCL [Concomitant]
  9. ASPIRIN [Concomitant]
  10. PERCOCET [Concomitant]
  11. FLEXERIL [Concomitant]
  12. ECONOPRED [Concomitant]
     Route: 047
     Dates: start: 20030512
  13. CILOXAN [Concomitant]
     Route: 047
     Dates: start: 20030512
  14. COUMADIN [Concomitant]
  15. REGULAR INSULIN [Concomitant]
  16. ACULAR [Concomitant]
  17. ALEVE [Concomitant]
  18. EXCEDRIN [Concomitant]
  19. HYDROCHLOROTHIAZIDE [Concomitant]
  20. ADVIL [Concomitant]
  21. ZOCOR [Concomitant]
  22. GINKGO BILOBA [Concomitant]
  23. ASCORBIC ACID [Concomitant]
  24. CIALIS [Concomitant]

REACTIONS (9)
  - ABNORMAL SENSATION IN EYE [None]
  - BLINDNESS [None]
  - BORDERLINE GLAUCOMA [None]
  - CATARACT [None]
  - DIABETIC RETINOPATHY [None]
  - MACULAR OEDEMA [None]
  - RETINOPATHY [None]
  - VISION BLURRED [None]
  - VISUAL IMPAIRMENT [None]
